FAERS Safety Report 4830616-X (Version None)
Quarter: 2005Q4

REPORT INFORMATION
  Report Type: 
  Country: None (occurrence: None)
  Receive Date: 20051115
  Receipt Date: 20051103
  Transmission Date: 20060501
  Serious: Yes (Hospitalization, Disabling)
  Sender: FDA-Public Use
  Company Number: FRWYE109903NOV05

PATIENT
  Age: 15 Year
  Sex: Male

DRUGS (3)
  1. MESTACINE (MINOCYCLINE) [Suspect]
     Indication: ACNE
     Dosage: 100 MG 1X PER 1 DAY ORAL
     Route: 048
     Dates: start: 20050908, end: 20050924
  2. EFFACNE (BENZOYL PEROXIDE, , 0) [Suspect]
     Indication: ACNE
     Dosage: TOPICAL
     Route: 061
     Dates: start: 20050908, end: 20050924
  3. RUBOZINC (ZINC GLUCONATE, , 0) [Suspect]
     Indication: ACNE
     Dosage: ORAL
     Route: 048
     Dates: start: 20050908, end: 20050924

REACTIONS (12)
  - ARTHRALGIA [None]
  - DRUG RESISTANCE [None]
  - EDUCATIONAL PROBLEM [None]
  - EYELID OEDEMA [None]
  - FACE OEDEMA [None]
  - OEDEMA PERIPHERAL [None]
  - PAIN IN EXTREMITY [None]
  - PYREXIA [None]
  - RASH PRURITIC [None]
  - SKIN DISCOLOURATION [None]
  - URTICARIA [None]
  - WHITE BLOOD CELL COUNT INCREASED [None]
